FAERS Safety Report 17094539 (Version 1)
Quarter: 2019Q4

REPORT INFORMATION
  Report Type: Report from Study
  Country: ES (occurrence: ES)
  Receive Date: 20191129
  Receipt Date: 20191129
  Transmission Date: 20200122
  Serious: Yes (Hospitalization)
  Sender: FDA-Public Use
  Company Number: ES-ACCORD-162469

PATIENT
  Age: 30 Year
  Sex: Female

DRUGS (6)
  1. SINOGAN [Interacting]
     Active Substance: LEVOMEPROMAZINE
     Indication: PSYCHOMOTOR HYPERACTIVITY
     Dosage: STRENGTH: 25 MG / ML, 10 AMPOULES OF 1 ML
     Route: 042
     Dates: start: 20190812, end: 20190812
  2. QUETIAPINE. [Suspect]
     Active Substance: QUETIAPINE
     Indication: BIPOLAR DISORDER
     Route: 048
     Dates: start: 201907, end: 20190811
  3. OLANZAPINE. [Concomitant]
     Active Substance: OLANZAPINE
     Indication: BIPOLAR DISORDER
     Route: 048
     Dates: start: 201907, end: 20190811
  4. OLANZAPINE. [Interacting]
     Active Substance: OLANZAPINE
     Indication: PSYCHOMOTOR HYPERACTIVITY
     Route: 030
     Dates: start: 20190812, end: 20190812
  5. DEPAKINE CRONO [Concomitant]
     Active Substance: VALPROIC ACID
     Indication: BIPOLAR DISORDER
     Dosage: STRENGTH: 500 MG, 100 TABLETS
     Route: 048
     Dates: start: 201907, end: 20190811
  6. RIVOTRIL [Concomitant]
     Active Substance: CLONAZEPAM
     Indication: BIPOLAR DISORDER
     Dosage: STRENGTH:  2.5 MG/ML, 1 BOTTLE OF 10 ML
     Route: 048
     Dates: start: 201907, end: 20190811

REACTIONS (2)
  - Neuroleptic malignant syndrome [Recovered/Resolved]
  - Drug interaction [Unknown]

NARRATIVE: CASE EVENT DATE: 20190812
